FAERS Safety Report 13607615 (Version 4)
Quarter: 2017Q3

REPORT INFORMATION
  Report Type: Report from Study
  Country: JP (occurrence: JP)
  Receive Date: 20170602
  Receipt Date: 20170901
  Transmission Date: 20171127
  Serious: Yes (Death, Other)
  Sender: FDA-Public Use
  Company Number: JP-OTSUKA-2017_012096

PATIENT
  Age: 53 Year
  Sex: Male
  Weight: 86.1 kg

DRUGS (22)
  1. ARIPIPRAZOLE (DUAL CHAMBER) [Suspect]
     Active Substance: ARIPIPRAZOLE
     Dosage: 400 MG, SINGLE, DELTOID MUSCLE
     Route: 030
     Dates: start: 20160705, end: 20160705
  2. ARIPIPRAZOLE (DUAL CHAMBER) [Suspect]
     Active Substance: ARIPIPRAZOLE
     Dosage: 400 MG, SINGLE, DELTOID MUSCLE
     Route: 030
     Dates: start: 20161025, end: 20161025
  3. ARIPIPRAZOLE (DUAL CHAMBER) [Suspect]
     Active Substance: ARIPIPRAZOLE
     Dosage: 400 MG, SINGLE, DELTOID MUSCLE
     Route: 030
     Dates: start: 20161122, end: 20161122
  4. ARIPIPRAZOLE (DUAL CHAMBER) [Suspect]
     Active Substance: ARIPIPRAZOLE
     Dosage: 400 MG, SINGLE, DELTOID MUSCLE
     Route: 030
     Dates: start: 20160413, end: 20160413
  5. ARIPIPRAZOLE (DUAL CHAMBER) [Suspect]
     Active Substance: ARIPIPRAZOLE
     Dosage: 400 MG, SINGLE, DELTOID MUSCLE
     Route: 030
     Dates: start: 20160511, end: 20160511
  6. ARIPIPRAZOLE (DUAL CHAMBER) [Suspect]
     Active Substance: ARIPIPRAZOLE
     Dosage: 400 MG, SINGLE, DELTOID MUSCLE
     Route: 030
     Dates: start: 20160315, end: 20160315
  7. ARIPIPRAZOLE (DUAL CHAMBER) [Suspect]
     Active Substance: ARIPIPRAZOLE
     Dosage: 400 MG, SINGLE, DELTOID MUSCLE
     Route: 030
     Dates: start: 20170117, end: 20170117
  8. LENDORMIN [Concomitant]
     Active Substance: BROTIZOLAM
     Indication: INSOMNIA
     Dosage: 0.25 MG, QD
     Route: 048
     Dates: start: 20160108
  9. ARIPIPRAZOLE (DUAL CHAMBER) [Suspect]
     Active Substance: ARIPIPRAZOLE
     Dosage: 400 MG, SINGLE, DELTOID MUSCLE
     Route: 030
     Dates: start: 20170214, end: 20170214
  10. ABILIFY [Concomitant]
     Active Substance: ARIPIPRAZOLE
     Dosage: 18 MG, QD
     Route: 048
     Dates: start: 20160315, end: 20160328
  11. ARIPIPRAZOLE (DUAL CHAMBER) [Suspect]
     Active Substance: ARIPIPRAZOLE
     Dosage: 400 MG, SINGLE, DELTOID MUSCLE
     Route: 030
     Dates: start: 20160607, end: 20160607
  12. ARIPIPRAZOLE (DUAL CHAMBER) [Suspect]
     Active Substance: ARIPIPRAZOLE
     Dosage: 400 MG, SINGLE, DELTOID MUSCLE
     Route: 030
     Dates: start: 20160927, end: 20160927
  13. ARIPIPRAZOLE (DUAL CHAMBER) [Suspect]
     Active Substance: ARIPIPRAZOLE
     Dosage: 400 MG, SINGLE, DELTOID MUSCLE
     Route: 030
     Dates: start: 20161220, end: 20161220
  14. ABILIFY [Concomitant]
     Active Substance: ARIPIPRAZOLE
     Indication: SCHIZOPHRENIA
     Dosage: 30 MG, QD
     Route: 048
     Dates: end: 20160314
  15. BENZALIN [Concomitant]
     Active Substance: NITRAZEPAM
     Indication: INSOMNIA
     Dosage: 5 MG, QD
     Route: 048
     Dates: start: 20160119, end: 20160510
  16. ARIPIPRAZOLE (DUAL CHAMBER) [Suspect]
     Active Substance: ARIPIPRAZOLE
     Dosage: 400 MG, SINGLE, DELTOID MUSCLE
     Route: 030
     Dates: start: 20160802, end: 20160802
  17. ARIPIPRAZOLE (DUAL CHAMBER) [Suspect]
     Active Substance: ARIPIPRAZOLE
     Dosage: 400 MG, SINGLE, DELTOID MUSCLE
     Route: 030
     Dates: start: 20160830, end: 20160830
  18. BENZALIN [Concomitant]
     Active Substance: NITRAZEPAM
     Dosage: 2.5 MG, QD
     Route: 048
     Dates: start: 20160511, end: 20160927
  19. ARIPIPRAZOLE (DUAL CHAMBER) [Suspect]
     Active Substance: ARIPIPRAZOLE
     Indication: SCHIZOPHRENIA
     Dosage: 400 MG, SINGLE, DELTOID MUSCLE
     Route: 030
     Dates: start: 20170509, end: 20170509
  20. ARIPIPRAZOLE (DUAL CHAMBER) [Suspect]
     Active Substance: ARIPIPRAZOLE
     Dosage: 400 MG, SINGLE, DELTOID MUSCLE
     Route: 030
     Dates: start: 20170314, end: 20170314
  21. ARIPIPRAZOLE (DUAL CHAMBER) [Suspect]
     Active Substance: ARIPIPRAZOLE
     Dosage: 400 MG, SINGLE, DELTOID MUSCLE
     Route: 030
     Dates: start: 20170411, end: 20170411
  22. ABILIFY [Concomitant]
     Active Substance: ARIPIPRAZOLE
     Dosage: 12 MG, QD
     Route: 048
     Dates: start: 20160329, end: 20160404

REACTIONS (4)
  - Death [Fatal]
  - Heat exhaustion [Unknown]
  - Nausea [Unknown]
  - Vomiting [Unknown]

NARRATIVE: CASE EVENT DATE: 20170508
